FAERS Safety Report 11505002 (Version 1)
Quarter: 2015Q3

REPORT INFORMATION
  Report Type: Spontaneous
  Country: US (occurrence: US)
  Receive Date: 20150915
  Receipt Date: 20150915
  Transmission Date: 20151125
  Serious: No
  Sender: FDA-Public Use
  Company Number: US-ROCHE-770386

PATIENT
  Sex: Male

DRUGS (2)
  1. PEGASYS [Suspect]
     Active Substance: PEGINTERFERON ALFA-2A
     Indication: HEPATITIS C
     Dosage: HEPATITIS C GENOTYPE POSSIBLY 1B; PFS
     Route: 058
  2. RIBASPHERE [Suspect]
     Active Substance: RIBAVIRIN
     Indication: HEPATITIS C
     Dosage: DOSES: 600 AND 400 MG; DIVIDED DOSES; HEPATITIS C GENOTYPE POSSIBLY 1B
     Route: 048

REACTIONS (4)
  - Decreased appetite [Not Recovered/Not Resolved]
  - Retching [Unknown]
  - Nausea [Not Recovered/Not Resolved]
  - Vomiting [Unknown]
